FAERS Safety Report 16107813 (Version 1)
Quarter: 2019Q1

REPORT INFORMATION
  Report Type: Spontaneous
  Country: US (occurrence: US)
  Receive Date: 20190322
  Receipt Date: 20190322
  Transmission Date: 20190418
  Serious: Yes (Death)
  Sender: FDA-Public Use
  Company Number: US-ALLERGAN-1911286US

PATIENT
  Sex: Female

DRUGS (3)
  1. AMLODIPINE [Suspect]
     Active Substance: AMLODIPINE BESYLATE
     Indication: COMPLETED SUICIDE
     Dosage: UNK
     Route: 065
  2. ALCOHOL. [Suspect]
     Active Substance: ALCOHOL
     Indication: COMPLETED SUICIDE
     Dosage: UNK
     Route: 065
  3. BUTALBITAL;ASPIRIN;CAFFEINE UNK [Suspect]
     Active Substance: ASPIRIN\BUTALBITAL\CAFFEINE
     Indication: COMPLETED SUICIDE
     Dosage: UNK
     Route: 065

REACTIONS (2)
  - Completed suicide [Fatal]
  - Off label use [Unknown]
